FAERS Safety Report 16013326 (Version 1)
Quarter: 2019Q1

REPORT INFORMATION
  Report Type: Spontaneous
  Country: US (occurrence: US)
  Receive Date: 20190130
  Receipt Date: 20190130
  Transmission Date: 20190418
  Serious: Yes (Death, Hospitalization)
  Sender: FDA-Public Use
  Company Number: None

PATIENT
  Age: 78 Year
  Sex: Female

DRUGS (11)
  1. VITAMIN D3 [Concomitant]
     Active Substance: CHOLECALCIFEROL
  2. OCUVITE WITH LUTEIN [Concomitant]
  3. METOLAZONE. [Concomitant]
     Active Substance: METOLAZONE
  4. LETAIRIS [Suspect]
     Active Substance: AMBRISENTAN
     Indication: CONGENITAL CARDIOVASCULAR ANOMALY
     Dosage: ABOUT 4 DAYS
     Route: 048
  5. LOSARTAN. [Concomitant]
     Active Substance: LOSARTAN
  6. SILDENAFIL. [Concomitant]
     Active Substance: SILDENAFIL
  7. FISH OIL [Concomitant]
     Active Substance: FISH OIL
  8. GLIPIZIDE. [Concomitant]
     Active Substance: GLIPIZIDE
  9. FUROSEMIDE. [Concomitant]
     Active Substance: FUROSEMIDE
  10. OXYGEN INTRANASAL [Concomitant]
  11. SPIRONOLACTONE. [Concomitant]
     Active Substance: SPIRONOLACTONE

REACTIONS (3)
  - Dyspnoea [None]
  - Condition aggravated [None]
  - Asthenia [None]

NARRATIVE: CASE EVENT DATE: 20190101
